FAERS Safety Report 12969862 (Version 6)
Quarter: 2020Q3

REPORT INFORMATION
  Report Type: Report from Study
  Country: AU (occurrence: AU)
  Receive Date: 20161123
  Receipt Date: 20170912
  Transmission Date: 20201105
  Serious: Yes (Hospitalization, Other)
  Sender: FDA-Public Use
  Company Number: AU-JNJFOC-20161117625

PATIENT
  Age: 45 Year
  Sex: Female
  Weight: 75 kg

DRUGS (5)
  1. USTEKINUMAB [Suspect]
     Active Substance: USTEKINUMAB
     Route: 058
  2. LEVONORGESTREL. [Concomitant]
     Active Substance: LEVONORGESTREL
     Route: 065
     Dates: start: 20141205
  3. GASTROSTOP [Concomitant]
     Indication: DIARRHOEA
     Route: 048
  4. PANADOL [Concomitant]
     Active Substance: ACETAMINOPHEN
     Indication: HEADACHE
     Route: 048
  5. USTEKINUMAB [Suspect]
     Active Substance: USTEKINUMAB
     Indication: CROHN^S DISEASE
     Route: 058
     Dates: start: 20121017

REACTIONS (1)
  - Renal cell carcinoma [Recovered/Resolved]

NARRATIVE: CASE EVENT DATE: 20160730
